FAERS Safety Report 9980769 (Version 1)
Quarter: 2014Q1

REPORT INFORMATION
  Report Type: Spontaneous
  Country: GB (occurrence: GB)
  Receive Date: 20140307
  Receipt Date: 20140307
  Transmission Date: 20141002
  Serious: Yes (Other)
  Sender: FDA-Public Use
  Company Number: GB-ASTRAZENECA-2014SE15194

PATIENT
  Age: 78 Year
  Sex: Female

DRUGS (6)
  1. FELODIPINE [Suspect]
     Indication: HYPERTENSION
     Route: 048
     Dates: start: 20140212, end: 20140218
  2. BISOPROLOL [Concomitant]
  3. CLOPIDOGREL [Concomitant]
  4. DILZEM SR [Concomitant]
  5. LEVOTHYROXINE [Concomitant]
  6. QUININE [Concomitant]

REACTIONS (4)
  - Hallucination [Not Recovered/Not Resolved]
  - Oedema [Not Recovered/Not Resolved]
  - Rash [Not Recovered/Not Resolved]
  - Balance disorder [Not Recovered/Not Resolved]
